FAERS Safety Report 14893677 (Version 6)
Quarter: 2018Q4

REPORT INFORMATION
  Report Type: Spontaneous
  Country: US (occurrence: US)
  Receive Date: 20180514
  Receipt Date: 20181128
  Transmission Date: 20190204
  Serious: No
  Sender: FDA-Public Use
  Company Number: US-LEXICON PHARMACEUTICALS, INC-18-1606-00437

PATIENT
  Sex: Female

DRUGS (15)
  1. TELOTRISTAT ETHYL [Suspect]
     Active Substance: TELOTRISTAT ETHYL
     Indication: CARCINOID SYNDROME
     Route: 048
     Dates: start: 20180207, end: 2018
  2. PANTOPRAZOLE SODIUM. [Concomitant]
     Active Substance: PANTOPRAZOLE SODIUM
  3. SIMVASTATIN. [Concomitant]
     Active Substance: SIMVASTATIN
  4. AMLODIPINE [Concomitant]
     Active Substance: AMLODIPINE BESYLATE
  5. GLIMEPIRIDE. [Concomitant]
     Active Substance: GLIMEPIRIDE
  6. TELOTRISTAT ETHYL [Suspect]
     Active Substance: TELOTRISTAT ETHYL
     Route: 048
     Dates: start: 2018
  7. CILOSTAZOL. [Concomitant]
     Active Substance: CILOSTAZOL
  8. EPINEPHRINE. [Concomitant]
     Active Substance: EPINEPHRINE
  9. FERROUS SULFATE. [Concomitant]
     Active Substance: FERROUS SULFATE
  10. GABAPENTIN. [Concomitant]
     Active Substance: GABAPENTIN
  11. BYDUREON [Concomitant]
     Active Substance: EXENATIDE
     Dates: start: 201805
  12. METFORMIN [Concomitant]
     Active Substance: METFORMIN HYDROCHLORIDE
  13. POTASSIUM CHLORIDE. [Concomitant]
     Active Substance: POTASSIUM CHLORIDE
  14. NITROGLYCERIN. [Concomitant]
     Active Substance: NITROGLYCERIN
  15. WARFARIN [Concomitant]
     Active Substance: WARFARIN

REACTIONS (4)
  - Feeling of body temperature change [Unknown]
  - Hyperhidrosis [Unknown]
  - Weight decreased [Unknown]
  - Diarrhoea [Unknown]

NARRATIVE: CASE EVENT DATE: 2018
